FAERS Safety Report 16664846 (Version 1)
Quarter: 2019Q3

REPORT INFORMATION
  Report Type: Spontaneous
  Country: US (occurrence: US)
  Receive Date: 20190803
  Receipt Date: 20190803
  Transmission Date: 20191004
  Serious: Yes (Other)
  Sender: FDA-Public Use
  Company Number: US-ACCORD-068708

PATIENT
  Age: 60 Year
  Sex: Female

DRUGS (20)
  1. HERCEPTIN [Suspect]
     Active Substance: TRASTUZUMAB
     Indication: BREAST CANCER
  2. TRAMADOL. [Concomitant]
     Active Substance: TRAMADOL
  3. FLUOXETINE [Concomitant]
     Active Substance: FLUOXETINE HYDROCHLORIDE
  4. LEVOTHYROXINE/LEVOTHYROXINE SODIUM [Concomitant]
     Dates: start: 1995
  5. PROCHLORPERAZINE. [Concomitant]
     Active Substance: PROCHLORPERAZINE
  6. NEULASTA [Concomitant]
     Active Substance: PEGFILGRASTIM
  7. PERJETA [Suspect]
     Active Substance: PERTUZUMAB
     Indication: BREAST CANCER
     Dates: start: 20150710, end: 20151023
  8. OMEPRAZOLE. [Concomitant]
     Active Substance: OMEPRAZOLE
  9. COUMADIN [Concomitant]
     Active Substance: WARFARIN SODIUM
  10. ATIVAN [Concomitant]
     Active Substance: LORAZEPAM
  11. DOCETAXEL ACCORD [Suspect]
     Active Substance: DOCETAXEL
     Indication: BREAST CANCER
     Dosage: NUMBER OF CYCLES: 06
     Dates: start: 20150710, end: 20151023
  12. PARAPLATIN [Suspect]
     Active Substance: CARBOPLATIN
     Indication: BREAST CANCER
     Dates: start: 20150710, end: 20151023
  13. CYMBALTA [Concomitant]
     Active Substance: DULOXETINE HYDROCHLORIDE
     Dates: start: 2006, end: 2015
  14. GARCINIA GUMMI-GUTTA [Concomitant]
     Active Substance: DIETARY SUPPLEMENT
  15. BUTALBITAL/CAFFEINE/PARACETAMOL [Concomitant]
  16. VALACICLOVIR [Concomitant]
     Active Substance: VALACYCLOVIR HYDROCHLORIDE
  17. CARISOPRODOL. [Concomitant]
     Active Substance: CARISOPRODOL
  18. DEXAMETHASONE. [Concomitant]
     Active Substance: DEXAMETHASONE
  19. PRILOSEC [Concomitant]
     Active Substance: OMEPRAZOLE MAGNESIUM
     Dates: start: 2014, end: 2015
  20. DIHYDROCODEINE/PARACETAMOL [Concomitant]

REACTIONS (1)
  - Alopecia [Not Recovered/Not Resolved]

NARRATIVE: CASE EVENT DATE: 20160423
